FAERS Safety Report 18054779 (Version 1)
Quarter: 2020Q3

REPORT INFORMATION
  Report Type: Spontaneous
  Country: CA (occurrence: CA)
  Receive Date: 20200722
  Receipt Date: 20200722
  Transmission Date: 20201103
  Serious: Yes (Hospitalization)
  Sender: FDA-Public Use
  Company Number: CA-PERRIGO-20CA010357

PATIENT
  Age: 20 Month
  Sex: Male
  Weight: 15 kg

DRUGS (2)
  1. MORPHINE SULFATE. [Suspect]
     Active Substance: MORPHINE SULFATE
     Dosage: 3 MG, SINGLE
     Route: 048
  2. MORPHINE SULFATE. [Suspect]
     Active Substance: MORPHINE SULFATE
     Dosage: 2 MG, SINGLE
     Route: 048

REACTIONS (6)
  - Loss of consciousness [Recovered/Resolved]
  - Overdose [Recovered/Resolved]
  - Cerebellar ataxia [Recovered/Resolved]
  - Blindness cortical [Recovering/Resolving]
  - Brain oedema [Recovering/Resolving]
  - Dysmetria [Recovered/Resolved]
